FAERS Safety Report 7405038-8 (Version None)
Quarter: 2011Q1

REPORT INFORMATION
  Report Type: 
  Country: None (occurrence: None)
  Receive Date: 20110331
  Receipt Date: 20100517
  Transmission Date: 20110831
  Serious: Yes (Other)
  Sender: FDA-Public Use
  Company Number: 2011MA002846

PATIENT
  Age: 66 Year
  Sex: Female

DRUGS (4)
  1. METOCLOPRAMIDE [Concomitant]
  2. PACLITAXEL [Suspect]
     Indication: OVARIAN CANCER RECURRENT
     Dosage: 162 MG; QW; IV
     Route: 042
  3. DEXAMETHASONE [Concomitant]
  4. RANITIDINE [Concomitant]

REACTIONS (2)
  - ARTHRALGIA [None]
  - JOINT SWELLING [None]
